FAERS Safety Report 5037836-2 (Version None)
Quarter: 2006Q2

REPORT INFORMATION
  Report Type: 
  Country: None (occurrence: None)
  Receive Date: 20060601
  Receipt Date: 20060404
  Transmission Date: 20061013
  Serious: Yes (Hospitalization)
  Sender: FDA-Public Use
  Company Number: 2005US001872

PATIENT
  Age: 17 Year
  Sex: Male

DRUGS (7)
  1. PROGRAF [Suspect]
     Indication: PROPHYLAXIS AGAINST TRANSPLANT REJECTION
     Dosage: SEE IMAGE
     Route: 048
     Dates: start: 20031230
  2. PROGRAF [Suspect]
     Indication: PROPHYLAXIS AGAINST TRANSPLANT REJECTION
     Dosage: SEE IMAGE
     Route: 048
     Dates: start: 20051212
  3. CELLCEPT [Concomitant]
  4. PREDNISONE TAB [Concomitant]
  5. CALCITROL (ERGOCALCIFEROL, RETINOL) [Concomitant]
  6. PROCARDIA XL [Concomitant]
  7. TRAZODONE HCL [Concomitant]

REACTIONS (1)
  - DRUG LEVEL INCREASED [None]
